FAERS Safety Report 17115438 (Version 2)
Quarter: 2019Q4

REPORT INFORMATION
  Report Type: Spontaneous
  Country: JP (occurrence: JP)
  Receive Date: 20191205
  Receipt Date: 20191216
  Transmission Date: 20200122
  Serious: Yes (Death, Other)
  Sender: FDA-Public Use
  Company Number: JP-ALLERGAN-1949517US

PATIENT
  Sex: Male

DRUGS (2)
  1. BOTOX [Suspect]
     Active Substance: ONABOTULINUMTOXINA
     Indication: MUSCLE SPASTICITY
     Dosage: 300 UNITS, SINGLE
     Route: 030
     Dates: start: 201510, end: 201510
  2. BOTOX [Suspect]
     Active Substance: ONABOTULINUMTOXINA
     Indication: MUSCLE SPASTICITY
     Dosage: 300 UNK, SINGLE
     Route: 030
     Dates: start: 2012, end: 2012

REACTIONS (5)
  - Asthenia [Unknown]
  - Gastrooesophageal reflux disease [Unknown]
  - Marasmus [Fatal]
  - Pneumonia aspiration [Fatal]
  - Hyporeflexia [Unknown]

NARRATIVE: CASE EVENT DATE: 201602
